FAERS Safety Report 18356047 (Version 1)
Quarter: 2020Q4

REPORT INFORMATION
  Report Type: Spontaneous
  Country: US (occurrence: US)
  Receive Date: 20201007
  Receipt Date: 20201007
  Transmission Date: 20210114
  Serious: Yes (Other)
  Sender: FDA-Public Use
  Company Number: US-B.I. PHARMACEUTICALS,INC./RIDGEFIELD-2020-BI-051484

PATIENT
  Age: 66 Year
  Sex: Female

DRUGS (2)
  1. GILOTRIF [Suspect]
     Active Substance: AFATINIB
     Indication: LUNG ADENOCARCINOMA STAGE IV
  2. DEXAMETHASONE. [Suspect]
     Active Substance: DEXAMETHASONE
     Indication: STOMATITIS
     Route: 061

REACTIONS (10)
  - Diarrhoea [Unknown]
  - Oral candidiasis [Unknown]
  - Therapy partial responder [Unknown]
  - Stomatitis [Recovered/Resolved]
  - Bone lesion [Unknown]
  - Malignant neoplasm progression [Unknown]
  - Drug resistance [Unknown]
  - Dermatitis acneiform [Recovered/Resolved]
  - Off label use [Unknown]
  - Paronychia [Recovered/Resolved]
